FAERS Safety Report 14199005 (Version 1)
Quarter: 2017Q4

REPORT INFORMATION
  Report Type: Spontaneous
  Country: FR (occurrence: FR)
  Receive Date: 20171117
  Receipt Date: 20171117
  Transmission Date: 20180321
  Serious: Yes (Other)
  Sender: FDA-Public Use
  Company Number: FR-MERCK KGAA-2034511

PATIENT
  Sex: Female

DRUGS (1)
  1. NOVOTHYROX [Suspect]
     Active Substance: LEVOTHYROXINE SODIUM
     Indication: PRODUCT USED FOR UNKNOWN INDICATION

REACTIONS (8)
  - Hot flush [None]
  - Sleep disorder [None]
  - Hyperthyroidism [None]
  - Hypothyroidism [None]
  - Arthralgia [None]
  - Sensory disturbance [None]
  - Weight increased [None]
  - Fatigue [None]
